FAERS Safety Report 21370190 (Version 2)
Quarter: 2022Q4

REPORT INFORMATION
  Report Type: Spontaneous
  Country: GB (occurrence: GB)
  Receive Date: 20220923
  Receipt Date: 20221028
  Transmission Date: 20230113
  Serious: Yes (Hospitalization, Other)
  Sender: FDA-Public Use
  Company Number: GB-MYLANLABS-2022M1050888

PATIENT
  Age: 71 Year
  Sex: Female
  Weight: 40 kg

DRUGS (2)
  1. CLOZARIL [Suspect]
     Active Substance: CLOZAPINE
     Indication: Schizophrenia
     Dosage: 75 MILLIGRAM, BID
     Route: 048
     Dates: start: 20050207, end: 20220920
  2. CLOZARIL [Suspect]
     Active Substance: CLOZAPINE
     Dosage: 300 MILLIGRAM, QD (100MG MANE AND 200MG NOCTE))
     Route: 065

REACTIONS (11)
  - Urosepsis [Unknown]
  - General physical health deterioration [Not Recovered/Not Resolved]
  - Thrombocytopenia [Recovered/Resolved]
  - Unresponsive to stimuli [Unknown]
  - Poor venous access [Unknown]
  - Asthenia [Unknown]
  - Hypervigilance [Unknown]
  - Communication disorder [Unknown]
  - Tremor [Unknown]
  - Muscular weakness [Unknown]
  - Agitation [Unknown]

NARRATIVE: CASE EVENT DATE: 20220702
